FAERS Safety Report 22091245 (Version 1)
Quarter: 2023Q1

REPORT INFORMATION
  Report Type: Spontaneous
  Country: CN (occurrence: None)
  Receive Date: 20230314
  Receipt Date: 20230314
  Transmission Date: 20230417
  Serious: Yes (Hospitalization)
  Sender: FDA-Public Use
  Company Number: 2023A057646

PATIENT
  Age: 11330 Day
  Sex: Female
  Weight: 48 kg

DRUGS (3)
  1. SEROQUEL [Suspect]
     Active Substance: QUETIAPINE FUMARATE
     Indication: Symptomatic treatment
     Route: 048
     Dates: start: 20230112, end: 20230112
  2. LITHIUM CARBONATE [Suspect]
     Active Substance: LITHIUM CARBONATE
     Indication: Symptomatic treatment
     Route: 048
     Dates: start: 20230112, end: 20230112
  3. REMERON [Suspect]
     Active Substance: MIRTAZAPINE
     Indication: Symptomatic treatment
     Route: 048
     Dates: start: 20230112, end: 20230112

REACTIONS (3)
  - Altered state of consciousness [Recovering/Resolving]
  - Somnolence [Recovering/Resolving]
  - Dyspnoea [Recovering/Resolving]

NARRATIVE: CASE EVENT DATE: 20230112
